FAERS Safety Report 9469732 (Version 1)
Quarter: 2013Q3

REPORT INFORMATION
  Report Type: Report from Study
  Country: BR (occurrence: BR)
  Receive Date: 20130822
  Receipt Date: 20130822
  Transmission Date: 20140515
  Serious: Yes (Death, Other)
  Sender: FDA-Public Use
  Company Number: PHHO2013BR010861

PATIENT
  Age: 74 Year
  Sex: Male
  Weight: 72 kg

DRUGS (12)
  1. PROGRAF [Suspect]
     Indication: RENAL TRANSPLANT
     Dosage: 6 MG, BID
     Dates: start: 20130627, end: 20130630
  2. PROGRAF [Suspect]
     Dosage: 4 MG, BID
     Dates: start: 20130701, end: 20130710
  3. PROGRAF [Suspect]
     Dosage: 3 MG, BID
     Dates: start: 20130711, end: 20130713
  4. PROGRAF [Suspect]
     Dosage: 2 MG, BID
     Dates: start: 20130714, end: 20130715
  5. MYFORTIC [Suspect]
     Indication: RENAL TRANSPLANT
     Dosage: 720 MG, BID
     Dates: start: 20130627, end: 20130708
  6. MYFORTIC [Suspect]
     Dosage: 540 MG, BID
     Dates: start: 20130709, end: 20130712
  7. MYFORTIC [Suspect]
     Dosage: 360 MG, BID
     Dates: start: 20130713, end: 20130714
  8. PREDNISONE [Suspect]
     Indication: RENAL TRANSPLANT
     Dosage: 35 MG, UNK [MANL]
     Dates: start: 20130701, end: 20130704
  9. PREDNISONE [Suspect]
     Dosage: 25 MG, UNK [MANL]
     Dates: start: 20130705, end: 20130714
  10. PREDNISONE [Suspect]
     Dosage: 20 MG, UNK [MANL]
     Dates: start: 20130715, end: 20130715
  11. GANCICLOVIR [Concomitant]
     Indication: PROPHYLAXIS
     Dosage: 100 MG, QW3
     Route: 042
     Dates: start: 20130627, end: 20130714
  12. TRIMETOPRIM + SULFAMETOXAZOL [Concomitant]
     Indication: PROPHYLAXIS
     Dosage: 1 DF, BID (80/400MG)
     Route: 048
     Dates: start: 20130627, end: 20130715

REACTIONS (6)
  - Spleen disorder [Unknown]
  - Sepsis [Fatal]
  - Encephalitis [Unknown]
  - Intestinal ulcer [Unknown]
  - Bronchopneumonia [Unknown]
  - Gastric ulcer [Unknown]
